FAERS Safety Report 5657348-2 (Version None)
Quarter: 2008Q1

REPORT INFORMATION
  Report Type: 
  Country: None (occurrence: None)
  Receive Date: 20080310
  Receipt Date: 20080227
  Transmission Date: 20080703
  Serious: Yes (Hospitalization)
  Sender: FDA-Public Use
  Company Number: US-PFIZER INC-2005107655

PATIENT
  Sex: Male
  Weight: 77.3 kg

DRUGS (7)
  1. SUTENT [Suspect]
     Indication: GASTROINTESTINAL STROMAL TUMOUR
     Route: 048
  2. SENNOSIDES [Concomitant]
     Route: 048
  3. PROTONIX [Concomitant]
     Route: 048
  4. ZOLOFT [Concomitant]
     Route: 048
  5. METHADONE HCL [Concomitant]
     Route: 048
  6. ACTIQ [Concomitant]
     Indication: PAIN
     Dosage: DAILY DOSE:1600MCG
     Route: 048
  7. OMNICEF [Concomitant]

REACTIONS (2)
  - ABDOMINAL PAIN [None]
  - CELLULITIS [None]
